FAERS Safety Report 23852059 (Version 1)
Quarter: 2024Q2

REPORT INFORMATION
  Report Type: Report from Study
  Country: CA (occurrence: CA)
  Receive Date: 20240514
  Receipt Date: 20240514
  Transmission Date: 20240716
  Serious: Yes (Other)
  Sender: FDA-Public Use
  Company Number: CA-JNJFOC-20240526322

PATIENT
  Age: 77 Year
  Sex: Female

DRUGS (9)
  1. BOSENTAN [Suspect]
     Active Substance: BOSENTAN
     Indication: Pulmonary hypertension
     Route: 048
     Dates: start: 20200714, end: 20240507
  2. ADCIRCA [Concomitant]
     Active Substance: TADALAFIL
  3. PANTOPRAZOLE [Concomitant]
     Active Substance: PANTOPRAZOLE
  4. METHOTREXATE [Concomitant]
     Active Substance: METHOTREXATE
  5. ADALAT [Concomitant]
     Active Substance: NIFEDIPINE
  6. RIVAROXABAN [Concomitant]
     Active Substance: RIVAROXABAN
  7. CHOLECALCIFEROL [Concomitant]
     Active Substance: CHOLECALCIFEROL
  8. PROLEAK [Concomitant]
  9. IRON [Concomitant]
     Active Substance: IRON

REACTIONS (1)
  - Palliative care [Unknown]
